FAERS Safety Report 16032088 (Version 2)
Quarter: 2019Q2

REPORT INFORMATION
  Report Type: Other
  Country: None (occurrence: US)
  Receive Date: 20190304
  Receipt Date: 20190613
  Transmission Date: 20190711
  Serious: Yes (Death, Hospitalization)
  Sender: FDA-Public Use
  Company Number: US-MEDAC PHARMA, INC.-2063529

PATIENT
  Age: 3 Year
  Weight: 15.4 kg

DRUGS (6)
  1. ONCASPAR [Suspect]
     Active Substance: PEGASPARGASE
     Dates: start: 20181209, end: 20181209
  2. METHOTREXATE. [Suspect]
     Active Substance: METHOTREXATE
     Indication: B PRECURSOR TYPE ACUTE LEUKAEMIA
     Dates: start: 20181206, end: 20181213
  3. VINCRISTINE SULFATE. [Suspect]
     Active Substance: VINCRISTINE SULFATE
     Dates: start: 20181206
  4. CYTARABINE. [Suspect]
     Active Substance: CYTARABINE
     Dates: start: 20181206, end: 20181206
  5. DEXAMETHASONE. [Suspect]
     Active Substance: DEXAMETHASONE
     Dates: start: 20181206, end: 20181219
  6. DAUNORUBICIN HYDROCHLORIDE. [Suspect]
     Active Substance: DAUNORUBICIN HYDROCHLORIDE
     Dates: start: 20181213, end: 20181213

REACTIONS (5)
  - Abdominal compartment syndrome [Unknown]
  - Clostridial sepsis [Fatal]
  - Cardio-respiratory arrest [Fatal]
  - Colitis [Unknown]
  - Sepsis [Fatal]

NARRATIVE: CASE EVENT DATE: 20181220
